FAERS Safety Report 21813321 (Version 2)
Quarter: 2023Q1

REPORT INFORMATION
  Report Type: Spontaneous
  Country: US (occurrence: US)
  Receive Date: 20230103
  Receipt Date: 20230113
  Transmission Date: 20230417
  Serious: Yes (Other)
  Sender: FDA-Public Use
  Company Number: US-CTI BIOPHARMA-2022US03288

PATIENT

DRUGS (3)
  1. VONJO [Suspect]
     Active Substance: PACRITINIB
     Indication: Product used for unknown indication
     Dosage: 200 MG
     Route: 048
     Dates: start: 20220428, end: 20220606
  2. METOPROLOL [Concomitant]
     Active Substance: METOPROLOL
  3. AMICAR [Concomitant]
     Active Substance: AMINOCAPROIC ACID

REACTIONS (2)
  - Gastrointestinal haemorrhage [Unknown]
  - Platelet count decreased [Unknown]

NARRATIVE: CASE EVENT DATE: 20220501
